FAERS Safety Report 4670450-7 (Version None)
Quarter: 2005Q2

REPORT INFORMATION
  Report Type: 
  Country: None (occurrence: None)
  Receive Date: 20050523
  Receipt Date: 20050518
  Transmission Date: 20051028
  Serious: Yes (Life-Threatening)
  Sender: FDA-Public Use
  Company Number: GB-MERCK-0505USA02166

PATIENT
  Age: 61 Year
  Sex: Male
  Weight: 75 kg

DRUGS (6)
  1. PRINIVIL [Suspect]
     Indication: CARDIAC FAILURE
     Route: 048
     Dates: start: 20040101, end: 20050205
  2. THIAMINE [Concomitant]
     Indication: BLOOD ALCOHOL INCREASED
     Route: 048
  3. VITAMIN B COMPLEX [Concomitant]
     Indication: BLOOD ALCOHOL INCREASED
     Route: 048
  4. PRAVASTATIN SODIUM [Concomitant]
     Indication: HYPERCHOLESTEROLAEMIA
     Route: 048
  5. WARFARIN [Concomitant]
     Indication: ATRIAL FIBRILLATION
     Route: 048
  6. IMDUR [Concomitant]
     Indication: MYOCARDIAL ISCHAEMIA
     Route: 048

REACTIONS (2)
  - ANAPHYLACTIC REACTION [None]
  - ANGIONEUROTIC OEDEMA [None]
